FAERS Safety Report 16877164 (Version 2)
Quarter: 2019Q4

REPORT INFORMATION
  Report Type: Spontaneous
  Country: US (occurrence: US)
  Receive Date: 20191002
  Receipt Date: 20191021
  Transmission Date: 20200122
  Serious: Yes (Other)
  Sender: FDA-Public Use
  Company Number: US-ALLERGAN-1939085US

PATIENT
  Sex: Female

DRUGS (3)
  1. REFRESH TEARS [Suspect]
     Active Substance: CARBOXYMETHYLCELLULOSE SODIUM
     Indication: DRY EYE
     Dosage: 2 GTT, PRN
     Route: 047
  2. LATANOPROST. [Concomitant]
     Active Substance: LATANOPROST
     Indication: OCULAR HYPERTENSION
     Dosage: 1 GTT, QHS
  3. NEOMYCIN AND POLYMYXIN B SULFATES AND DEXAMET [Concomitant]
     Dosage: UNK

REACTIONS (1)
  - Glaucoma surgery [Unknown]

NARRATIVE: CASE EVENT DATE: 20190211
